FAERS Safety Report 6187454-8 (Version None)
Quarter: 2009Q2

REPORT INFORMATION
  Report Type: 
  Country: None (occurrence: None)
  Receive Date: 20090512
  Receipt Date: 20090507
  Transmission Date: 20091009
  Serious: Yes (Other)
  Sender: FDA-Public Use
  Company Number: US-BRISTOL-MYERS SQUIBB COMPANY-14617955

PATIENT

DRUGS (2)
  1. BARACLUDE [Suspect]
     Indication: HEPATITIS B
  2. ADEFOVIR DIPIVOXIL KIT [Concomitant]

REACTIONS (1)
  - NEPHROPATHY TOXIC [None]
